FAERS Safety Report 4955563-4 (Version None)
Quarter: 2006Q1

REPORT INFORMATION
  Report Type: 
  Country: None (occurrence: None)
  Receive Date: 20060328
  Receipt Date: 20051025
  Transmission Date: 20060701
  Serious: Yes (Hospitalization, Other)
  Sender: FDA-Public Use
  Company Number: US-MERCK-0510USA09237

PATIENT
  Age: 77 Year
  Sex: Female
  Weight: 127 kg

DRUGS (6)
  1. VIOXX [Suspect]
     Indication: ARTHRITIS
     Route: 048
     Dates: start: 19990605, end: 20040501
  2. LANOXIN [Concomitant]
     Route: 065
  3. GLYBURIDE [Concomitant]
     Route: 065
  4. TRIAMCINOLONE [Concomitant]
     Route: 065
  5. WARFARIN [Concomitant]
     Route: 065
  6. DIAZEPAM [Concomitant]
     Route: 065

REACTIONS (8)
  - CARDIAC FAILURE CONGESTIVE [None]
  - CARDIAC VALVE DISEASE [None]
  - CEREBROVASCULAR ACCIDENT [None]
  - DIABETES MELLITUS [None]
  - DYSPNOEA [None]
  - HYPERTENSION [None]
  - OEDEMA PERIPHERAL [None]
  - RENAL DISORDER [None]
